FAERS Safety Report 4534081-1 (Version None)
Quarter: 2004Q4

REPORT INFORMATION
  Report Type: 
  Country: None (occurrence: None)
  Receive Date: 20041222
  Receipt Date: 20041210
  Transmission Date: 20050328
  Serious: Yes (Hospitalization, Other)
  Sender: FDA-Public Use
  Company Number: IT-JNJFOC-20041202899

PATIENT
  Sex: Male

DRUGS (3)
  1. REMICADE [Suspect]
     Indication: ANKYLOSING SPONDYLITIS
     Route: 065
  2. METHOTREXATE [Concomitant]
     Route: 030
  3. GLUCOPHAGE [Concomitant]
     Route: 049

REACTIONS (1)
  - MALIGNANT MELANOMA [None]
